FAERS Safety Report 15178847 (Version 1)
Quarter: 2018Q3

REPORT INFORMATION
  Report Type: Spontaneous
  Country: BR (occurrence: BR)
  Receive Date: 20180722
  Receipt Date: 20180722
  Transmission Date: 20181010
  Serious: Yes (Other)
  Sender: FDA-Public Use
  Company Number: PHHY2018BR049545

PATIENT
  Sex: Female
  Weight: 64 kg

DRUGS (1)
  1. CODATEN [Suspect]
     Active Substance: CODEINE PHOSPHATE\DICLOFENAC SODIUM
     Indication: BACK PAIN
     Dosage: 1 DF, Q12H
     Route: 048
     Dates: start: 2013, end: 2013

REACTIONS (1)
  - Back pain [Not Recovered/Not Resolved]
